FAERS Safety Report 25245277 (Version 1)
Quarter: 2025Q2

REPORT INFORMATION
  Report Type: Spontaneous
  Country: US (occurrence: None)
  Receive Date: 20250425
  Receipt Date: 20250425
  Transmission Date: 20250717
  Serious: Yes (Hospitalization)
  Sender: FDA-CTU
  Company Number: None

PATIENT
  Age: 58 Year
  Sex: Female

DRUGS (2)
  1. EVEROLIMUS [Suspect]
     Active Substance: EVEROLIMUS
     Indication: Renal cancer
     Dosage: 5 MG QD
  2. LENVIMA [Suspect]
     Active Substance: LENVATINIB

REACTIONS (9)
  - Diarrhoea [None]
  - Dyspepsia [None]
  - Vomiting [None]
  - Nausea [None]
  - Blood pressure increased [None]
  - Metastases to central nervous system [None]
  - Seizure [None]
  - Ankylosing spondylitis [None]
  - Eye inflammation [None]
